FAERS Safety Report 12528526 (Version 2)
Quarter: 2016Q3

REPORT INFORMATION
  Report Type: Spontaneous
  Country: JP (occurrence: JP)
  Receive Date: 20160705
  Receipt Date: 20160829
  Transmission Date: 20161109
  Serious: Yes (Hospitalization)
  Sender: FDA-Public Use
  Company Number: JP-PFIZER INC-2016327352

PATIENT
  Age: 48 Year
  Sex: Male

DRUGS (1)
  1. CHAMPIX 1MG [Suspect]
     Active Substance: VARENICLINE TARTRATE
     Indication: SMOKING CESSATION THERAPY
     Dosage: 1 MG, 2X/DAY
     Route: 048

REACTIONS (1)
  - Appendicitis [Unknown]
